FAERS Safety Report 5188537-1 (Version None)
Quarter: 2006Q4

REPORT INFORMATION
  Report Type: 
  Country: None (occurrence: None)
  Receive Date: 20061214
  Receipt Date: 20061201
  Transmission Date: 20070319
  Serious: Yes (Other)
  Sender: FDA-Public Use
  Company Number: 2006SP007607

PATIENT
  Age: 52 Year
  Sex: Male

DRUGS (2)
  1. PEG-INTRON [Suspect]
     Indication: HEPATITIS C
     Dosage: SC
     Route: 058
     Dates: start: 20060822, end: 20061117
  2. REBETOL [Suspect]
     Indication: HEPATITIS C
     Dosage: PO
     Route: 048
     Dates: start: 20060822, end: 20061117

REACTIONS (4)
  - COGNITIVE DISORDER [None]
  - GASTROINTESTINAL INFECTION [None]
  - HALLUCINATION, AUDITORY [None]
  - SCHIZOPHRENIA [None]
